FAERS Safety Report 23759289 (Version 1)
Quarter: 2024Q2

REPORT INFORMATION
  Report Type: Spontaneous
  Country: US (occurrence: None)
  Receive Date: 20240418
  Receipt Date: 20240418
  Transmission Date: 20240716
  Serious: No
  Sender: FDA-Public Use
  Company Number: US-ROCHE-3375979

PATIENT
  Sex: Female
  Weight: 87.622 kg

DRUGS (2)
  1. ESBRIET [Suspect]
     Active Substance: PIRFENIDONE
     Indication: Idiopathic pulmonary fibrosis
     Dosage: YES
     Route: 048
  2. HALLS MENTHOLYPTUS [Concomitant]
     Active Substance: MENTHOL
     Indication: Cough

REACTIONS (1)
  - Cough [Unknown]
